FAERS Safety Report 10677170 (Version 2)
Quarter: 2015Q2

REPORT INFORMATION
  Report Type: Spontaneous
  Country: CA (occurrence: CA)
  Receive Date: 20141226
  Receipt Date: 20150407
  Transmission Date: 20150821
  Serious: Yes (Other)
  Sender: FDA-Public Use
  Company Number: PHHY2014CA167724

PATIENT
  Sex: Female

DRUGS (4)
  1. PROGESTERONE. [Suspect]
     Active Substance: PROGESTERONE
     Indication: MENSTRUAL DISORDER
     Route: 067
  2. LETROZOLE. [Suspect]
     Active Substance: LETROZOLE
     Indication: ANOVULATORY CYCLE
     Dosage: 2.5 MG, UNK
     Route: 048
  3. LETROZOLE. [Suspect]
     Active Substance: LETROZOLE
     Dosage: 5 MG, UNK
     Route: 048
  4. LETROZOLE. [Suspect]
     Active Substance: LETROZOLE
     Dosage: 7.5 MG, UNK
     Route: 048
     Dates: start: 20120718, end: 20120722

REACTIONS (5)
  - Preterm premature rupture of membranes [Unknown]
  - Product use issue [Unknown]
  - Maternal exposure during pregnancy [Unknown]
  - Multiple pregnancy [Unknown]
  - Abortion spontaneous [Unknown]
